FAERS Safety Report 6942006-4 (Version None)
Quarter: 2010Q3

REPORT INFORMATION
  Report Type: 
  Country: None (occurrence: None)
  Receive Date: 20100826
  Receipt Date: 20100813
  Transmission Date: 20110219
  Serious: Yes (Death, Hospitalization)
  Sender: FDA-Public Use
  Company Number: DE-SANOFI-AVENTIS-2010SA048082

PATIENT
  Age: 51 Year
  Sex: Male

DRUGS (15)
  1. OXALIPLATIN [Suspect]
     Route: 041
     Dates: start: 20100616, end: 20100616
  2. OXALIPLATIN [Suspect]
     Route: 041
     Dates: start: 20100712, end: 20100712
  3. CETUXIMAB [Suspect]
     Route: 041
     Dates: start: 20100616, end: 20100616
  4. CETUXIMAB [Suspect]
     Route: 041
     Dates: start: 20100712, end: 20100712
  5. FLUOROURACIL [Suspect]
     Route: 041
     Dates: start: 20100616, end: 20100616
  6. FLUOROURACIL [Suspect]
     Route: 041
     Dates: start: 20100712, end: 20100712
  7. LEUCOVORIN CALCIUM [Suspect]
     Route: 041
     Dates: start: 20100616, end: 20100616
  8. LEUCOVORIN CALCIUM [Suspect]
     Route: 041
     Dates: start: 20100712, end: 20100712
  9. EMBOLEX [Concomitant]
     Indication: PRODUCT USED FOR UNKNOWN INDICATION
     Route: 058
     Dates: start: 20100601
  10. CALCIUM [Concomitant]
     Indication: PRODUCT USED FOR UNKNOWN INDICATION
     Route: 065
     Dates: start: 20000101
  11. ARAVA [Concomitant]
     Indication: PRODUCT USED FOR UNKNOWN INDICATION
     Route: 065
     Dates: start: 20070101
  12. PREDNISOLONE [Concomitant]
     Indication: PRODUCT USED FOR UNKNOWN INDICATION
     Route: 065
     Dates: start: 20070101
  13. OMEPRAZOLE [Concomitant]
     Indication: PRODUCT USED FOR UNKNOWN INDICATION
     Route: 065
     Dates: start: 20000101
  14. MEVALOTIN [Concomitant]
     Indication: PRODUCT USED FOR UNKNOWN INDICATION
     Route: 065
     Dates: start: 20050101
  15. METOPROLOL [Concomitant]
     Indication: PRODUCT USED FOR UNKNOWN INDICATION
     Route: 065

REACTIONS (3)
  - DEHYDRATION [None]
  - DIARRHOEA [None]
  - MULTI-ORGAN FAILURE [None]
